FAERS Safety Report 6967721-8 (Version None)
Quarter: 2010Q3

REPORT INFORMATION
  Report Type: 
  Country: None (occurrence: None)
  Receive Date: 20100907
  Receipt Date: 20100830
  Transmission Date: 20110219
  Serious: Yes (Other)
  Sender: FDA-Public Use
  Company Number: US-BAYER-201019589BCC

PATIENT
  Age: 65 Year
  Sex: Female
  Weight: 47 kg

DRUGS (22)
  1. ASPIRIN [Suspect]
     Indication: ISCHAEMIC HEART DISEASE PROPHYLAXIS
     Dosage: TOTAL DAILY DOSE: 325 MG  UNIT DOSE: 325 MG
     Route: 048
  2. CITRACAL REGULAR 250MG PLUS D [Suspect]
     Indication: PRODUCT USED FOR UNKNOWN INDICATION
     Dosage: UNIT DOSE: 1 DF
     Route: 048
  3. CITRACAL REGULAR 250MG PLUS D [Suspect]
     Dosage: UNIT DOSE: 1 DF
     Route: 048
     Dates: start: 19980101
  4. CITRACAL PETITES TABLETS [Suspect]
     Indication: VITAMIN SUPPLEMENTATION
     Dosage: UNIT DOSE: 1 DF
     Route: 048
  5. CITRACAL MAXIMUM CAPLETS + D [Suspect]
     Indication: VITAMIN SUPPLEMENTATION
     Dosage: UNIT DOSE: 1 DF
     Route: 048
     Dates: start: 20100101
  6. GLUCOSAMINE SULFATE [Concomitant]
     Route: 065
  7. FISH OIL [Concomitant]
     Route: 065
  8. D-3 [Concomitant]
     Route: 065
  9. BIOTIN [Concomitant]
     Route: 065
  10. AMLODIPINE BESYLATE [Concomitant]
     Route: 065
  11. ASPIRIN [Concomitant]
     Route: 065
  12. SIMVASTATIN [Concomitant]
     Route: 065
  13. EXECELON PATCHES [Concomitant]
     Route: 065
  14. EXECELON PATCHES [Concomitant]
     Route: 065
  15. NAMENDA [Concomitant]
     Route: 065
  16. EFFEXOR [Concomitant]
     Route: 065
  17. VENLAFAXINE [Concomitant]
     Route: 065
  18. LORAZEPAM [Concomitant]
     Route: 065
  19. ZOMETA [Concomitant]
     Route: 065
  20. ESTRADIOL [Concomitant]
     Route: 065
  21. ESTRACE [Concomitant]
     Route: 065
  22. ALLERGY SHOTS [Concomitant]
     Route: 065

REACTIONS (6)
  - ABDOMINAL PAIN [None]
  - CONSTIPATION [None]
  - DYSPNOEA [None]
  - FOREIGN BODY [None]
  - OROPHARYNGEAL PAIN [None]
  - THROAT IRRITATION [None]
